FAERS Safety Report 18758732 (Version 1)
Quarter: 2021Q1

REPORT INFORMATION
  Report Type: Report from Study
  Country: HN (occurrence: HN)
  Receive Date: 20210119
  Receipt Date: 20210119
  Transmission Date: 20210419
  Serious: Yes (Death, Other)
  Sender: FDA-Public Use
  Company Number: HN-BAYER-2020-278995

PATIENT
  Age: 62 Year
  Sex: Male

DRUGS (2)
  1. STIVARGA [Suspect]
     Active Substance: REGORAFENIB
     Indication: HEPATOCELLULAR CARCINOMA
     Dosage: 160 MG PER DAY
     Dates: start: 20201001, end: 20210108
  2. NEXIUM I.V. [Concomitant]
     Active Substance: ESOMEPRAZOLE SODIUM
     Dosage: DAILY
     Route: 042
     Dates: start: 20201212

REACTIONS (3)
  - Abdominal pain [Fatal]
  - Haematochezia [None]
  - Incorrect product administration duration [None]

NARRATIVE: CASE EVENT DATE: 20201127
